FAERS Safety Report 8003076-8 (Version None)
Quarter: 2011Q4

REPORT INFORMATION
  Report Type: 
  Country: None (occurrence: None)
  Receive Date: 20111222
  Receipt Date: 20111219
  Transmission Date: 20120403
  Serious: Yes (Hospitalization, Other)
  Sender: FDA-Public Use
  Company Number: JP-ABBOTT-11P-087-0720708-00

PATIENT
  Age: 43 Year
  Sex: Male

DRUGS (10)
  1. CIPROFLOXACIN HCL [Concomitant]
     Indication: MYCOBACTERIUM AVIUM COMPLEX INFECTION
     Dates: start: 20060914, end: 20070927
  2. PENTAMIDINE ISETHIONATE [Concomitant]
     Indication: PNEUMOCYSTIS JIROVECI PNEUMONIA
     Dates: start: 20060914, end: 20070927
  3. DARUNAVIR ETHANOLATE [Concomitant]
     Indication: HIV INFECTION
     Dosage: DAILY DOSE: 800 MG
     Route: 048
     Dates: start: 20100311
  4. EPZICOM [Suspect]
     Indication: HIV INFECTION
     Route: 048
     Dates: start: 20061002
  5. PENTAMIDINE ISETHIONATE [Concomitant]
     Indication: PROPHYLAXIS
  6. REYATAZ [Suspect]
     Indication: HIV INFECTION
     Dosage: DAILY DOSE: 300MG
     Route: 048
     Dates: start: 20081002, end: 20100310
  7. ETHAMBUTOL HYDROCHLORIDE [Concomitant]
     Indication: MYCOBACTERIUM AVIUM COMPLEX INFECTION
     Dates: start: 20060914, end: 20070927
  8. NORVIR [Suspect]
     Indication: HIV INFECTION
     Dosage: DAILY DOSE: 100MG
     Route: 048
     Dates: start: 20061020
  9. INSULIN [Concomitant]
     Indication: DIABETES MELLITUS
     Dates: start: 20060901
  10. ZITHROMAX [Concomitant]
     Indication: MYCOBACTERIUM AVIUM COMPLEX INFECTION
     Dates: start: 20060914, end: 20070927

REACTIONS (6)
  - BACK PAIN [None]
  - FEELING HOT [None]
  - CHILLS [None]
  - PYELONEPHRITIS ACUTE [None]
  - PYURIA [None]
  - CALCULUS URETERIC [None]
